FAERS Safety Report 4468386-X (Version None)
Quarter: 2004Q4

REPORT INFORMATION
  Report Type: 
  Country: None (occurrence: None)
  Receive Date: 20041007
  Receipt Date: 20040929
  Transmission Date: 20050328
  Serious: Yes (Life-Threatening)
  Sender: FDA-Public Use
  Company Number: GB-GLAXOSMITHKLINE-B0346710A

PATIENT
  Age: 71 Year
  Sex: Female

DRUGS (7)
  1. CEFUROXIME SODIUM [Suspect]
     Dosage: 1.5G SINGLE DOSE
     Route: 042
     Dates: start: 20040917, end: 20040917
  2. MORPHINE [Suspect]
     Indication: ANALGESIC EFFECT
     Dosage: .2MG SINGLE DOSE
     Route: 037
     Dates: start: 20040917, end: 20040917
  3. BUPIVACAINE [Concomitant]
     Dosage: 2.8ML SINGLE DOSE
     Route: 065
     Dates: start: 20040917, end: 20040917
  4. MIDAZOLAM HCL [Concomitant]
     Indication: SEDATION
     Route: 042
     Dates: start: 20040917, end: 20040917
  5. EPHEDRINE SUL CAP [Concomitant]
     Indication: HEART RATE
     Route: 042
     Dates: start: 20040917, end: 20040917
  6. ATENOLOL [Concomitant]
     Dosage: 100MG PER DAY
     Route: 065
  7. THYROXINE [Concomitant]
     Dosage: 100MCG PER DAY
     Route: 065

REACTIONS (2)
  - OBSTRUCTIVE AIRWAYS DISORDER [None]
  - SWOLLEN TONGUE [None]
